FAERS Safety Report 8360562-9 (Version None)
Quarter: 2012Q2

REPORT INFORMATION
  Report Type: 
  Country: None (occurrence: None)
  Receive Date: 20120515
  Receipt Date: 20120507
  Transmission Date: 20120825
  Serious: Yes (Hospitalization)
  Sender: FDA-Public Use
  Company Number: PHHY2012FR039720

PATIENT
  Sex: Male
  Weight: 84 kg

DRUGS (3)
  1. SIMVASTATIN [Concomitant]
     Indication: HYPERCHOLESTEROLAEMIA
     Dosage: 10 MG, DAILY
     Route: 048
     Dates: start: 20100101
  2. METFORMIN HCL [Concomitant]
     Indication: HYPERGLYCAEMIA
     Dosage: 500 MG/DAILY
     Route: 048
     Dates: start: 20120117
  3. EVEROLIMUS [Suspect]
     Indication: METASTATIC RENAL CELL CARCINOMA
     Dosage: 10 MG /DAILY
     Route: 048
     Dates: start: 20111026, end: 20120214

REACTIONS (3)
  - ANAEMIA [None]
  - PULMONARY OEDEMA [None]
  - CARDIAC FAILURE [None]
